FAERS Safety Report 5089956-4 (Version None)
Quarter: 2006Q3

REPORT INFORMATION
  Report Type: 
  Country: None (occurrence: None)
  Receive Date: 20060828
  Receipt Date: 20060724
  Transmission Date: 20061208
  Serious: Yes (Death, Hospitalization)
  Sender: FDA-Public Use
  Company Number: JP-NOVOPROD-255579

PATIENT
  Age: 83 Year
  Sex: Male

DRUGS (11)
  1. NOVOSEVEN [Suspect]
     Indication: HAEMORRHAGE
     Dosage: 6 MG, UNK
     Route: 042
     Dates: start: 20060705, end: 20060705
  2. NOVOSEVEN [Suspect]
     Dosage: 6 MG, UNK
     Route: 042
     Dates: start: 20060706, end: 20060706
  3. NOVOSEVEN [Suspect]
     Dosage: 6 MG, UNK
     Dates: start: 20060707, end: 20060707
  4. PERDIPINE [Concomitant]
  5. MEROPEN                            /01250501/ [Concomitant]
  6. PRECEDEX [Concomitant]
  7. LASIX                              /00032601/ [Concomitant]
  8. INOVAN [Concomitant]
  9. OMEPRAZOLE [Concomitant]
  10. MANNITOL [Concomitant]
  11. HUMULIN 70/30 [Concomitant]

REACTIONS (1)
  - RESPIRATORY FAILURE [None]
